FAERS Safety Report 16277414 (Version 1)
Quarter: 2019Q2

REPORT INFORMATION
  Report Type: Spontaneous
  Country: US (occurrence: US)
  Receive Date: 20190506
  Receipt Date: 20190506
  Transmission Date: 20190711
  Serious: Yes (Hospitalization, Other)
  Sender: FDA-Public Use
  Company Number: US-VERTEX PHARMACEUTICALS-2019-003896

PATIENT
  Sex: Female

DRUGS (6)
  1. BUDESONIDE. [Concomitant]
     Active Substance: BUDESONIDE
  2. ORKAMBI [Suspect]
     Active Substance: IVACAFTOR\LUMACAFTOR
     Indication: CYSTIC FIBROSIS
     Dosage: 2 DOSAGE FORM, BID
     Route: 048
     Dates: start: 201710
  3. CREON [Concomitant]
     Active Substance: PANCRELIPASE AMYLASE\PANCRELIPASE LIPASE\PANCRELIPASE PROTEASE
  4. ALBUTEROL                          /00139501/ [Concomitant]
     Active Substance: ALBUTEROL
  5. PULMOZYME [Concomitant]
     Active Substance: DORNASE ALFA
  6. HYPERSAL [Concomitant]
     Active Substance: SODIUM CHLORIDE

REACTIONS (4)
  - Influenza [Unknown]
  - Gastrointestinal tube insertion [Unknown]
  - Pseudomonas test positive [Unknown]
  - Hospitalisation [Unknown]

NARRATIVE: CASE EVENT DATE: 2019
